FAERS Safety Report 7997981 (Version 2)
Quarter: 2013Q1

REPORT INFORMATION
  Report Type: Spontaneous
  Country: AU (occurrence: AU)
  Receive Date: 20110620
  Receipt Date: 20130321
  Transmission Date: 20140127
  Serious: Yes (Death, Other)
  Sender: FDA-Public Use
  Company Number: PHHY2011AU51857

PATIENT
  Age: 81 Year
  Sex: Male

DRUGS (2)
  1. EXJADE [Suspect]
     Indication: IRON OVERLOAD
     Dosage: 0.5 DF, QD
     Route: 048
     Dates: start: 20110505
  2. EXJADE [Suspect]
     Dosage: 500 MG, DAILY
     Route: 048
     Dates: start: 20110516

REACTIONS (7)
  - Death [Fatal]
  - Intra-abdominal haemorrhage [Unknown]
  - Chest pain [Unknown]
  - Vomiting [Unknown]
  - Pain in extremity [Unknown]
  - Dyspepsia [Unknown]
  - Gastrointestinal pain [Unknown]
